FAERS Safety Report 7032421-5 (Version None)
Quarter: 2010Q4

REPORT INFORMATION
  Report Type: 
  Country: None (occurrence: None)
  Receive Date: 20101001
  Receipt Date: 20100922
  Transmission Date: 20110411
  Serious: Yes (Hospitalization)
  Sender: FDA-Public Use
  Company Number: 1000016393

PATIENT
  Age: 89 Year
  Sex: Male

DRUGS (11)
  1. LEXAPRO [Suspect]
  2. NAMENDA [Concomitant]
  3. ARICEPT [Concomitant]
  4. COZAAR [Concomitant]
  5. CLONIDINE [Concomitant]
  6. METHYLPHENIDATE (METHYLPHENIDATE) (METHYLPHENIDATE) [Concomitant]
  7. METOPROLOL SUCCINATE [Concomitant]
  8. OMEPRAZOLE [Concomitant]
  9. OXYTROL (OXYBUTYNIN TRANSDERMAL) (OXYBUTYNIN TRANSDERMAL) [Concomitant]
  10. SEROQUEL (QUETIAPINE FUMARATE) (QUETIAPINE FUMARATE) [Concomitant]
  11. STALEVO (CARBIDOPA, LEVODOPA, ENTACAPONE) (CARBIDOPA, LEVODOPA, ENTACA [Concomitant]

REACTIONS (2)
  - LETHARGY [None]
  - URINARY TRACT INFECTION [None]
